FAERS Safety Report 9529813 (Version 1)
Quarter: 2013Q3

REPORT INFORMATION
  Report Type: Report from Study
  Country: IN (occurrence: IN)
  Receive Date: 20130917
  Receipt Date: 20130917
  Transmission Date: 20140515
  Serious: Yes (Congenital Anomaly)
  Sender: FDA-Public Use
  Company Number: PHHY2013IN103070

PATIENT
  Sex: 0

DRUGS (2)
  1. TRILEPTAL [Suspect]
     Indication: EPILEPSY
     Dosage: MOTHER RECEIVED 900 MG DAILY
     Route: 064
  2. CLOBAZAM [Suspect]
     Indication: EPILEPSY
     Dosage: MOTHER RECEIVED UNKNOWN DOSE
     Route: 064

REACTIONS (2)
  - Atrial septal defect [Unknown]
  - Foetal exposure during pregnancy [Unknown]
